FAERS Safety Report 8580358-2 (Version None)
Quarter: 2012Q3

REPORT INFORMATION
  Report Type: 
  Country: None (occurrence: None)
  Receive Date: 20120808
  Receipt Date: 20120727
  Transmission Date: 20120928
  Serious: Yes (Death, Hospitalization)
  Sender: FDA-Public Use
  Company Number: JP-PFIZER INC-2012132813

PATIENT
  Age: 76 Year
  Sex: Male
  Weight: 51.5 kg

DRUGS (13)
  1. S. ADCHNON [Concomitant]
     Indication: HAEMOPTYSIS
     Dosage: 30 MG, 2X/DAY
     Route: 048
     Dates: start: 20111220
  2. TRANSAMINE CAP [Concomitant]
     Indication: HAEMOPTYSIS
     Dosage: 250 MG, 2X/DAY
     Route: 048
     Dates: start: 20111220
  3. HALOPERIDOL [Suspect]
     Indication: DELIRIUM
     Dosage: 1.5 MG, 1X/DAY
     Route: 048
     Dates: start: 20120529, end: 20120531
  4. TAMSULOSIN HYDROCHLORIDE [Concomitant]
     Indication: BENIGN PROSTATIC HYPERPLASIA
     Dosage: 0.2 MG, 1X/DAY
     Route: 048
  5. LOXOPROFEN [Concomitant]
     Indication: CANCER PAIN
     Dosage: 60 MG, 3X/DAY
     Route: 048
  6. MAGMITT [Concomitant]
     Indication: CONSTIPATION
     Dosage: 330 MG, 1X/DAY
     Route: 048
     Dates: start: 20120108
  7. PROTECADIN [Concomitant]
     Indication: GASTRITIS PROPHYLAXIS
     Dosage: 10 MG, 2X/DAY
     Route: 048
     Dates: start: 20120106
  8. SENNOSIDE A+B [Concomitant]
     Indication: CONSTIPATION
     Dosage: 12 MG, 1X/DAY
     Route: 048
     Dates: start: 20120108
  9. CRIZOTINIB [Suspect]
     Indication: NON-SMALL CELL LUNG CANCER
     Dosage: 250 MG, 2X/DAY
     Route: 048
     Dates: start: 20120528, end: 20120531
  10. HALOPERIDOL [Suspect]
     Indication: DELIRIUM
     Dosage: 5 MG, 1X/DAY
     Route: 042
     Dates: start: 20120531
  11. DIOVAN [Concomitant]
     Indication: HYPERTENSION
     Dosage: 80 MG, 1X/DAY
     Route: 048
     Dates: start: 20120120
  12. OXYCODONE [Concomitant]
     Indication: CANCER PAIN
     Dosage: 15 MG, 2X/DAY
     Route: 048
     Dates: start: 20120214
  13. OXYCODONE HYDROCHLORIDE [Concomitant]
     Indication: CANCER PAIN
     Dosage: 10 MG, AS NEEDED
     Route: 048
     Dates: start: 20120214

REACTIONS (2)
  - PNEUMONITIS [None]
  - DELIRIUM [None]
